FAERS Safety Report 14266539 (Version 2)
Quarter: 2018Q1

REPORT INFORMATION
  Report Type: Spontaneous
  Country: US (occurrence: US)
  Receive Date: 20171211
  Receipt Date: 20180118
  Transmission Date: 20180508
  Serious: Yes (Other)
  Sender: FDA-Public Use
  Company Number: US-BEH-2017085708

PATIENT
  Age: 29 Year
  Sex: Female
  Weight: 90.7 kg

DRUGS (2)
  1. BERINERT [Suspect]
     Active Substance: HUMAN C1-ESTERASE INHIBITOR
     Indication: HEREDITARY ANGIOEDEMA
     Dosage: 2000 IU, EVERY 24-48 HOURS
     Route: 042
     Dates: start: 20161107
  2. BERINERT [Suspect]
     Active Substance: HUMAN C1-ESTERASE INHIBITOR
     Indication: PROPHYLAXIS
     Dosage: 2000 IU, EVERY 24-48 HOURS
     Route: 042
     Dates: start: 201701

REACTIONS (3)
  - Malaise [Not Recovered/Not Resolved]
  - Hereditary angioedema [Unknown]
  - Campylobacter infection [Not Recovered/Not Resolved]

NARRATIVE: CASE EVENT DATE: 201711
